FAERS Safety Report 6152217-6 (Version None)
Quarter: 2009Q2

REPORT INFORMATION
  Report Type: 
  Country: None (occurrence: None)
  Receive Date: 20090410
  Receipt Date: 20090105
  Transmission Date: 20091009
  Serious: No
  Sender: FDA-Public Use
  Company Number: US-ASTRAZENECA-2009UW00237

PATIENT
  Sex: Male

DRUGS (3)
  1. TENORMIN [Suspect]
     Route: 048
  2. ZESTRIL [Suspect]
     Route: 048
  3. CATAPRES [Suspect]

REACTIONS (2)
  - CHEST PAIN [None]
  - LEFT VENTRICULAR HYPERTROPHY [None]
